FAERS Safety Report 25182417 (Version 1)
Quarter: 2025Q2

REPORT INFORMATION
  Report Type: Spontaneous
  Country: US (occurrence: US)
  Receive Date: 20250410
  Receipt Date: 20250410
  Transmission Date: 20250717
  Serious: No
  Sender: KINIKSA PHARMACEUTICALS
  Company Number: US-Kiniksa Pharmaceuticals Ltd.-2024KPU002356

PATIENT
  Age: 54 Year
  Sex: Female

DRUGS (3)
  1. ARCALYST [Suspect]
     Active Substance: RILONACEPT
     Indication: Pericarditis
     Route: 058
  2. ARCALYST [Suspect]
     Active Substance: RILONACEPT
     Route: 058
  3. ARMOUR THYROID [Concomitant]
     Active Substance: THYROID, PORCINE
     Indication: Product used for unknown indication

REACTIONS (3)
  - Serum ferritin increased [Unknown]
  - White blood cell count decreased [Unknown]
  - Transferrin increased [Unknown]

NARRATIVE: CASE EVENT DATE: 20240101
